FAERS Safety Report 4389630-3 (Version None)
Quarter: 2004Q2

REPORT INFORMATION
  Report Type: 
  Country: None (occurrence: None)
  Receive Date: 20040629
  Receipt Date: 20030610
  Transmission Date: 20050107
  Serious: Yes (Other)
  Sender: FDA-Public Use
  Company Number: NSADSS2003019856

PATIENT
  Age: 45 Year
  Sex: Male

DRUGS (4)
  1. DURAGESIC [Suspect]
     Indication: PAIN
     Dosage: 75 UG/HR, 1 IN 72 HOUR, TRANSDERMAL
     Route: 062
     Dates: start: 20030401
  2. ZESTRIL [Concomitant]
  3. DURICEF [Concomitant]
  4. CARDIZEM [Concomitant]

REACTIONS (1)
  - HYPERTENSION [None]
